FAERS Safety Report 9498905 (Version 3)
Quarter: 2013Q4

REPORT INFORMATION
  Report Type: Spontaneous
  Country: US (occurrence: US)
  Receive Date: 20130904
  Receipt Date: 20131030
  Transmission Date: 20140711
  Serious: Yes (Death, Other)
  Sender: FDA-Public Use
  Company Number: US-CELGENEUS-163-21880-13082921

PATIENT
  Age: 77 Year
  Sex: Female
  Weight: 74.91 kg

DRUGS (42)
  1. REVLIMID [Suspect]
     Indication: NON-HODGKIN^S LYMPHOMA STAGE IV
     Dosage: 10MG ALTERNATING WITH 20MG DAILY
     Route: 048
     Dates: start: 201304, end: 201306
  2. REVLIMID [Suspect]
     Dosage: 10MG ALTERNATING WITH 20MG DAILY
     Route: 048
     Dates: start: 2013, end: 201306
  3. OXYCONTIN [Concomitant]
     Indication: BACK PAIN
     Dosage: 90 MILLIGRAM
     Route: 048
  4. OXYCONTIN [Concomitant]
     Dosage: 60 MILLIGRAM
     Route: 048
  5. MORPHINE [Concomitant]
     Indication: PAIN
     Dosage: 30 MILLIGRAM
     Route: 048
  6. MORPHINE [Concomitant]
     Dosage: 60 MILLIGRAM
     Route: 048
  7. DILAUDID [Concomitant]
     Indication: BACK PAIN
     Dosage: 24 MILLIGRAM
     Route: 065
  8. RITUXIMAB [Concomitant]
     Indication: B-CELL LYMPHOMA
     Route: 065
     Dates: start: 2008
  9. RITUXIMAB [Concomitant]
     Route: 065
     Dates: start: 20120814, end: 2012
  10. RITUXIMAB [Concomitant]
     Route: 065
     Dates: start: 20121114, end: 2012
  11. RITUXIMAB [Concomitant]
     Route: 065
     Dates: start: 20121219, end: 2012
  12. RITUXIMAB [Concomitant]
     Route: 041
     Dates: start: 20130605, end: 20130605
  13. RITUXIMAB [Concomitant]
     Route: 041
     Dates: start: 20130620, end: 201306
  14. IFOSFAMIDE [Concomitant]
     Indication: PRODUCT USED FOR UNKNOWN INDICATION
     Route: 065
     Dates: start: 20130620, end: 201306
  15. CARBOPLATIN [Concomitant]
     Indication: PRODUCT USED FOR UNKNOWN INDICATION
     Route: 065
     Dates: start: 20130620, end: 201306
  16. ETOPOSIDE [Concomitant]
     Indication: B-CELL LYMPHOMA
     Route: 065
     Dates: start: 20120814, end: 201211
  17. ETOPOSIDE [Concomitant]
     Route: 065
     Dates: start: 20121219, end: 2013
  18. ETOPOSIDE [Concomitant]
     Route: 065
     Dates: start: 20130620, end: 201306
  19. NEUPOGEN [Concomitant]
     Indication: PRODUCT USED FOR UNKNOWN INDICATION
     Route: 065
     Dates: start: 2013
  20. DIAZEPAM [Concomitant]
     Indication: PRODUCT USED FOR UNKNOWN INDICATION
     Dosage: 20 MILLIGRAM
     Route: 048
  21. DOCUSATE SODIUM [Concomitant]
     Indication: PRODUCT USED FOR UNKNOWN INDICATION
     Dosage: 200 MILLIGRAM
     Route: 048
  22. FERROUS SULFATE [Concomitant]
     Indication: PRODUCT USED FOR UNKNOWN INDICATION
     Dosage: 325 MILLIGRAM
     Route: 048
  23. KLOR-CON M10 [Concomitant]
     Indication: PRODUCT USED FOR UNKNOWN INDICATION
     Dosage: 10 MILLIEQUIVALENTS
     Route: 048
  24. LISINOPRIL [Concomitant]
     Indication: PRODUCT USED FOR UNKNOWN INDICATION
     Dosage: 40 MILLIGRAM
     Route: 048
  25. VENLAFAXINE [Concomitant]
     Indication: PRODUCT USED FOR UNKNOWN INDICATION
     Dosage: 75 MILLIGRAM
     Route: 048
  26. POLYETHYLENE GLYCOL 3350 [Concomitant]
     Indication: PRODUCT USED FOR UNKNOWN INDICATION
     Dosage: 17 GRAM
     Route: 048
  27. OMEPRAZOLE [Concomitant]
     Indication: PRODUCT USED FOR UNKNOWN INDICATION
     Dosage: 40 MILLIGRAM
     Route: 048
  28. LACTULOSE [Concomitant]
     Indication: CONSTIPATION
     Dosage: 30 MILLILITER
     Route: 048
  29. BISACODYL [Concomitant]
     Indication: PRODUCT USED FOR UNKNOWN INDICATION
     Dosage: 10 MILLIGRAM
     Route: 054
  30. ALLOPURINOL [Concomitant]
     Indication: PRODUCT USED FOR UNKNOWN INDICATION
     Dosage: 100 MILLIGRAM
     Route: 048
  31. NEXIUM [Concomitant]
     Indication: PRODUCT USED FOR UNKNOWN INDICATION
     Dosage: 40 MILLIGRAM
     Route: 048
  32. AZITHROMYCIN [Concomitant]
     Indication: PRODUCT USED FOR UNKNOWN INDICATION
     Dosage: 500 MILLIGRAM
     Route: 048
  33. RED BLOOD CELLS [Concomitant]
     Indication: ANAEMIA
     Route: 041
     Dates: start: 201303
  34. POTASSIUM [Concomitant]
     Indication: PRODUCT USED FOR UNKNOWN INDICATION
     Dosage: 10 MILLIEQUIVALENTS
     Route: 048
  35. POTASSIUM [Concomitant]
     Route: 048
  36. SENOKOT [Concomitant]
     Indication: CONSTIPATION
     Dosage: 6
     Route: 065
  37. CLARITIN [Concomitant]
     Indication: PRODUCT USED FOR UNKNOWN INDICATION
     Dosage: 10 MILLIGRAM
     Route: 065
  38. AMBIEN [Concomitant]
     Indication: PRODUCT USED FOR UNKNOWN INDICATION
     Dosage: 10 MILLIGRAM
     Route: 065
  39. NORVASC [Concomitant]
     Indication: PRODUCT USED FOR UNKNOWN INDICATION
     Dosage: 2.5 MILLIGRAM
     Route: 065
  40. MAGNESIUM CITRATE [Concomitant]
     Indication: CONSTIPATION
     Route: 041
  41. AUGMENTIN [Concomitant]
     Indication: PRODUCT USED FOR UNKNOWN INDICATION
     Dosage: 500 MILLIGRAM
     Route: 048
  42. AUGMENTIN [Concomitant]
     Dosage: 500MG-125MG
     Route: 048

REACTIONS (3)
  - Non-Hodgkin^s lymphoma [Fatal]
  - Weight decreased [Not Recovered/Not Resolved]
  - No therapeutic response [Unknown]
